FAERS Safety Report 19371108 (Version 1)
Quarter: 2021Q2

REPORT INFORMATION
  Report Type: Spontaneous
  Country: US (occurrence: US)
  Receive Date: 20210604
  Receipt Date: 20210604
  Transmission Date: 20210717
  Serious: Yes (Other)
  Sender: FDA-Public Use
  Company Number: US-SPECGX-T202100753

PATIENT
  Age: 50 Year
  Sex: Female

DRUGS (1)
  1. METHADONE [Suspect]
     Active Substance: METHADONE HYDROCHLORIDE
     Indication: DRUG WITHDRAWAL MAINTENANCE THERAPY
     Dosage: UNK
     Route: 065

REACTIONS (10)
  - Pneumonia aspiration [Unknown]
  - Confusional state [Unknown]
  - Respiratory rate decreased [Unknown]
  - Nausea [Unknown]
  - Drug interaction [Unknown]
  - Torsade de pointes [Unknown]
  - Pyrexia [Unknown]
  - Lethargy [Unknown]
  - Sinus bradycardia [Unknown]
  - Vomiting [Unknown]
